FAERS Safety Report 7635785-4 (Version None)
Quarter: 2011Q3

REPORT INFORMATION
  Report Type: 
  Country: None (occurrence: None)
  Receive Date: 20110719
  Receipt Date: 20110704
  Transmission Date: 20111222
  Serious: Yes (Hospitalization)
  Sender: FDA-Public Use
  Company Number: TCI2011A03712

PATIENT
  Age: 62 Year
  Sex: Female

DRUGS (10)
  1. NORVASC [Concomitant]
  2. ACTOS [Suspect]
     Indication: DIABETES MELLITUS
     Dosage: 15 MG (15 MG, 1 IN 1 D)
     Route: 048
     Dates: start: 20060407, end: 20110421
  3. CRESTOR [Concomitant]
  4. VOGLIBOSE SW(VOGLIBOSE) [Concomitant]
  5. METFORMIN HYDROCHLORIDE [Concomitant]
  6. GLUCOBAY [Concomitant]
  7. LIPITOR [Concomitant]
  8. GLYBURIDE [Concomitant]
  9. LOSARTAN POTASSIUM [Concomitant]
  10. PRAVASTATIN NA AMEL (PRAVASTATIN SODIUM) [Concomitant]

REACTIONS (4)
  - ANAEMIA [None]
  - BLADDER NEOPLASM [None]
  - BLOOD URINE PRESENT [None]
  - URINE CYTOLOGY ABNORMAL [None]
